FAERS Safety Report 9141046 (Version 1)
Quarter: 2013Q1

REPORT INFORMATION
  Report Type: Spontaneous
  Country: IL (occurrence: IL)
  Receive Date: 20130305
  Receipt Date: 20130305
  Transmission Date: 20140127
  Serious: Yes (Death, Life-Threatening, Hospitalization, Other)
  Sender: FDA-Public Use
  Company Number: IL-B.I. PHARMACEUTICALS,INC./RIDGEFIELD-2012-AP-01124RI

PATIENT
  Age: 84 Year
  Sex: Female

DRUGS (9)
  1. PRADAXA [Suspect]
     Indication: ATRIAL FIBRILLATION
     Dosage: 220 MG
     Route: 048
     Dates: end: 201212
  2. ATACAND [Concomitant]
  3. CARDILOC [Concomitant]
  4. DOXALOC [Concomitant]
  5. SIMVASTATIN [Concomitant]
  6. NOVONORM [Concomitant]
  7. DROP LACRIMOL [Concomitant]
  8. LORIVAN [Concomitant]
  9. VASODIP [Concomitant]

REACTIONS (2)
  - Haemorrhage intracranial [Fatal]
  - Renal impairment [Unknown]
